FAERS Safety Report 13869868 (Version 1)
Quarter: 2017Q3

REPORT INFORMATION
  Report Type: Report from Study
  Country: US (occurrence: US)
  Receive Date: 20170815
  Receipt Date: 20170815
  Transmission Date: 20171127
  Serious: Yes (Other)
  Sender: FDA-Public Use
  Company Number: US-INDIVIOR LIMITED-INDV-103788-2017

PATIENT
  Age: 57 Year
  Sex: Female

DRUGS (2)
  1. SUBOXONE [Suspect]
     Active Substance: BUPRENORPHINE HYDROCHLORIDE\NALOXONE HYDROCHLORIDE
     Indication: DRUG USE DISORDER
     Dosage: 4MG, BID
     Route: 065
     Dates: start: 2016
  2. XANAX [Suspect]
     Active Substance: ALPRAZOLAM
     Indication: PRODUCT USED FOR UNKNOWN INDICATION
     Dosage: UNK
     Route: 065

REACTIONS (8)
  - Gait disturbance [Unknown]
  - Pre-existing condition improved [Not Recovered/Not Resolved]
  - Hypotonia [Unknown]
  - Intentional product misuse [Unknown]
  - Seizure [Unknown]
  - Drug abuse [Unknown]
  - Substance abuse [Unknown]
  - Tremor [Unknown]

NARRATIVE: CASE EVENT DATE: 2016
